FAERS Safety Report 6306317-8 (Version None)
Quarter: 2009Q3

REPORT INFORMATION
  Report Type: 
  Country: None (occurrence: None)
  Receive Date: 20090812
  Receipt Date: 20090804
  Transmission Date: 20100115
  Serious: Yes (Other)
  Sender: FDA-Public Use
  Company Number: PHHY2009NZ32758

PATIENT
  Sex: Male

DRUGS (1)
  1. GLEEVEC [Suspect]

REACTIONS (5)
  - CONJUNCTIVITIS [None]
  - DEPRESSION [None]
  - HEADACHE [None]
  - ISCHAEMIC NEUROPATHY [None]
  - LETHARGY [None]
